FAERS Safety Report 9540383 (Version 1)
Quarter: 2013Q2

REPORT INFORMATION
  Report Type: Spontaneous
  Country: US (occurrence: None)
  Receive Date: 20130531
  Receipt Date: 20130531
  Transmission Date: 20140414
  Serious: Yes (Other)
  Sender: FDA-Public Use
  Company Number: 1212USA007587

PATIENT
  Age: 63 Year
  Sex: Female

DRUGS (2)
  1. FOSAMAX [Suspect]
     Indication: OSTEOPENIA
     Dosage: 5 MG, QD, ORAL
     Route: 048
     Dates: start: 20060101
  2. FOSAMAX [Suspect]
     Indication: OSTEOPENIA
     Dosage: 70 MG/2800 IU, ORAL
     Route: 048

REACTIONS (13)
  - Osteonecrosis of jaw [None]
  - Osteoporosis [None]
  - Fall [None]
  - Head injury [None]
  - Face injury [None]
  - Sinus disorder [None]
  - Aortic arteriosclerosis [None]
  - Gingivitis [None]
  - Gingival inflammation [None]
  - Tooth loss [None]
  - Temporomandibular joint syndrome [None]
  - Gingival bleeding [None]
  - Arthritis [None]
